FAERS Safety Report 14225871 (Version 1)
Quarter: 2017Q4

REPORT INFORMATION
  Report Type: Report from Study
  Country: IE (occurrence: IE)
  Receive Date: 20171127
  Receipt Date: 20171127
  Transmission Date: 20180321
  Serious: Yes (Hospitalization)
  Sender: FDA-Public Use
  Company Number: IE-JNJFOC-20171115156

PATIENT
  Age: 78 Year
  Sex: Male

DRUGS (7)
  1. IMBRUVICA [Suspect]
     Active Substance: IBRUTINIB
     Indication: CHRONIC LYMPHOCYTIC LEUKAEMIA
     Route: 048
     Dates: start: 20171004
  2. METOPHAGE [Concomitant]
     Route: 050
  3. ATORVASTATIN [Concomitant]
     Active Substance: ATORVASTATIN
     Route: 050
  4. QUENTIAX [Concomitant]
     Active Substance: QUETIAPINE FUMARATE
     Route: 050
  5. ALLOPURINOL. [Concomitant]
     Active Substance: ALLOPURINOL
     Route: 050
  6. WARFARIN [Concomitant]
     Active Substance: WARFARIN
     Route: 065
  7. COMBODART [Concomitant]
     Active Substance: DUTASTERIDE\TAMSULOSIN
     Route: 050

REACTIONS (3)
  - Increased tendency to bruise [Not Recovered/Not Resolved]
  - Fatigue [Not Recovered/Not Resolved]
  - Muscle spasms [Not Recovered/Not Resolved]

NARRATIVE: CASE EVENT DATE: 20171005
